FAERS Safety Report 25001994 (Version 1)
Quarter: 2025Q1

REPORT INFORMATION
  Report Type: Spontaneous
  Country: GR (occurrence: GR)
  Receive Date: 20250224
  Receipt Date: 20250224
  Transmission Date: 20250408
  Serious: Yes (Hospitalization)
  Sender: ROCHE
  Company Number: GR-BoehringerIngelheim-2025-BI-008654

PATIENT
  Age: 50 Year
  Sex: Female

DRUGS (2)
  1. ALTEPLASE [Suspect]
     Active Substance: ALTEPLASE
     Indication: Thrombolysis
     Route: 065
  2. HEPARIN [Concomitant]
     Active Substance: HEPARIN SODIUM
     Indication: Thrombolysis

REACTIONS (4)
  - Catheter site swelling [Recovered/Resolved]
  - Haematoma [Recovered/Resolved]
  - Hypotension [Recovered/Resolved]
  - Haematocrit decreased [Recovered/Resolved]
